FAERS Safety Report 9543862 (Version 1)
Quarter: 2013Q3

REPORT INFORMATION
  Report Type: Spontaneous
  Country: IT (occurrence: IT)
  Receive Date: 20130923
  Receipt Date: 20130923
  Transmission Date: 20140515
  Serious: Yes (Other)
  Sender: FDA-Public Use
  Company Number: IT-MERCK-1210ITA006229

PATIENT
  Age: 71 Year
  Sex: Female

DRUGS (5)
  1. TRIMETON [Suspect]
     Indication: PROPHYLAXIS OF NAUSEA AND VOMITING
     Dosage: 10MG/1ML TOTAL
     Route: 042
     Dates: start: 20121003
  2. DOCETAXEL [Suspect]
     Indication: CHEMOTHERAPY
     Dosage: 75 MG/M2 OF BODY-SURFACE AREA, CYCLICAL
     Route: 042
     Dates: start: 20121003, end: 20121003
  3. ENDOXAN [Suspect]
     Indication: CHEMOTHERAPY
     Dosage: 600 MG/M2 OF BODY-SURFACE AREA, CYCLICAL
     Route: 042
     Dates: start: 20121003
  4. ONDANSETRON [Concomitant]
     Dosage: UNK
     Route: 042
     Dates: start: 20121003
  5. DECADRON [Concomitant]
     Dosage: 24 MG, UNK
     Route: 042
     Dates: start: 20121003

REACTIONS (2)
  - Feeling hot [Recovered/Resolved]
  - Erythema [Recovered/Resolved]
